FAERS Safety Report 12692589 (Version 1)
Quarter: 2016Q3

REPORT INFORMATION
  Report Type: Other
  Country: GB (occurrence: JP)
  Receive Date: 20160829
  Receipt Date: 20160829
  Transmission Date: 20161109
  Serious: Yes (Other)
  Sender: FDA-Public Use
  Company Number: JP-CLARIS PHARMASERVICES-1056815

PATIENT
  Age: 65 Year
  Sex: Female

DRUGS (5)
  1. BIMATOPROST. [Concomitant]
     Active Substance: BIMATOPROST
  2. BRIMONIDINE TARTRATE. [Concomitant]
     Active Substance: BRIMONIDINE TARTRATE
  3. TIMOLOL. [Concomitant]
     Active Substance: TIMOLOL
  4. BRINZOLAMIDE [Concomitant]
     Active Substance: BRINZOLAMIDE
  5. HALOPERIDOL. [Suspect]
     Active Substance: HALOPERIDOL
     Indication: MENTAL DISORDER

REACTIONS (1)
  - Floppy iris syndrome [Recovered/Resolved]
